FAERS Safety Report 7681103-5 (Version None)
Quarter: 2011Q3

REPORT INFORMATION
  Report Type: 
  Country: None (occurrence: None)
  Receive Date: 20110804
  Receipt Date: 20110803
  Transmission Date: 20111222
  Serious: Yes (Death)
  Sender: FDA-Public Use
  Company Number: 2011SP006277

PATIENT
  Age: 33 Year
  Sex: Male

DRUGS (6)
  1. OXYCODONE HCL [Suspect]
  2. METHADONE HYDROCHLORIDE [Suspect]
  3. MIRTAZAPINE [Suspect]
  4. TRAMADOL HYDROCHLORIDE [Suspect]
  5. ALCOHOL (ETHANOL) [Suspect]
  6. DIAZEPAM [Suspect]

REACTIONS (2)
  - DRUG INTERACTION [None]
  - POLYMEDICATION [None]
